FAERS Safety Report 9743142 (Version 2)
Quarter: 2013Q4

REPORT INFORMATION
  Report Type: Spontaneous
  Country: US (occurrence: US)
  Receive Date: 20131210
  Receipt Date: 20131210
  Transmission Date: 20140711
  Serious: Yes (Hospitalization)
  Sender: FDA-Public Use
  Company Number: US-GILEAD-2009-0024358

PATIENT
  Sex: Male
  Weight: 99.34 kg

DRUGS (10)
  1. LETAIRIS [Suspect]
     Indication: PULMONARY ARTERIAL HYPERTENSION
     Route: 048
     Dates: start: 20090406
  2. LASIX [Concomitant]
  3. LISINOPRIL [Concomitant]
  4. METOLAZONE [Concomitant]
  5. ACETAZOLAMIDE [Concomitant]
  6. METOPROLOL [Concomitant]
  7. CYMBALTA [Concomitant]
  8. LANTUS [Concomitant]
  9. MULTIVITAMIN [Concomitant]
  10. POTASSIUM [Concomitant]

REACTIONS (2)
  - Hypervolaemia [Unknown]
  - Anaemia [Unknown]
